FAERS Safety Report 7519783-7 (Version None)
Quarter: 2011Q2

REPORT INFORMATION
  Report Type: 
  Country: None (occurrence: None)
  Receive Date: 20110602
  Receipt Date: 20110527
  Transmission Date: 20111010
  Serious: No
  Sender: FDA-Public Use
  Company Number: US-PFIZER INC-2011115502

PATIENT
  Sex: Male

DRUGS (3)
  1. GEODON [Suspect]
     Dosage: UNK
     Route: 048
  2. GABAPENTIN [Concomitant]
     Dosage: UNK
  3. DEPAKOTE [Concomitant]
     Dosage: UNK

REACTIONS (2)
  - APATHY [None]
  - NEGATIVE THOUGHTS [None]
